FAERS Safety Report 7968977-5 (Version None)
Quarter: 2011Q4

REPORT INFORMATION
  Report Type: 
  Country: None (occurrence: None)
  Receive Date: 20111209
  Receipt Date: 20111202
  Transmission Date: 20120403
  Serious: Yes (Hospitalization)
  Sender: FDA-Public Use
  Company Number: PHHY2011US107046

PATIENT
  Age: 58 Year
  Sex: Female

DRUGS (10)
  1. LISINOPRIL [Concomitant]
     Dosage: 2.5 MG/DAY
  2. VALACICLOVIR [Suspect]
     Indication: HERPES ZOSTER OPHTHALMIC
     Dosage: 1 G, Q8H
     Route: 048
  3. FLUOXETINE [Concomitant]
     Dosage: 20 MG/DAY
  4. SOLIFENACIN SUCCINATE [Concomitant]
     Dosage: 10 MG/DAY
  5. SIMVASTATIN [Concomitant]
     Dosage: 20 MG/DAY
  6. SODIUM BICARBONATE [Concomitant]
     Dosage: 1300 MG/DAY
  7. LEVOTHYROXINE SODIUM [Concomitant]
     Dosage: 88 UG/DAY
  8. DONEPEZIL HCL [Concomitant]
     Dosage: 10 MG/DAY
  9. OMEPRAZOLE [Concomitant]
     Dosage: 20 MG/DAY
  10. METOPROLOL TARTRATE [Concomitant]
     Dosage: 50 MG/DAY

REACTIONS (18)
  - CEREBRAL SMALL VESSEL ISCHAEMIC DISEASE [None]
  - MENTAL STATUS CHANGES [None]
  - BLOOD UREA INCREASED [None]
  - BLOOD CREATININE INCREASED [None]
  - BLOOD SODIUM DECREASED [None]
  - EYE SWELLING [None]
  - EYE DISCHARGE [None]
  - VISION BLURRED [None]
  - PERIORBITAL OEDEMA [None]
  - SKIN EXFOLIATION [None]
  - BLISTER [None]
  - RASH ERYTHEMATOUS [None]
  - BLOOD PRESSURE INCREASED [None]
  - NEUROTOXICITY [None]
  - AGITATION [None]
  - DISORIENTATION [None]
  - HALLUCINATION, VISUAL [None]
  - CONFUSIONAL STATE [None]
